FAERS Safety Report 25642058 (Version 3)
Quarter: 2025Q3

REPORT INFORMATION
  Report Type: Report from Study
  Country: US (occurrence: US)
  Receive Date: 20250805
  Receipt Date: 20250925
  Transmission Date: 20251020
  Serious: Yes (Death, Other)
  Sender: TAKEDA
  Company Number: US-TAKEDA-2025TUS029091

PATIENT
  Sex: Male
  Weight: 146 kg

DRUGS (10)
  1. FRUQUINTINIB [Suspect]
     Active Substance: FRUQUINTINIB
     Indication: Rectal cancer
  2. FRUQUINTINIB [Suspect]
     Active Substance: FRUQUINTINIB
     Indication: Colorectal cancer stage IV
     Dates: start: 20250314, end: 20250625
  3. FRUQUINTINIB [Suspect]
     Active Substance: FRUQUINTINIB
  4. FLOMAX [Concomitant]
     Active Substance: TAMSULOSIN HYDROCHLORIDE
     Indication: Prostate cancer
     Dosage: 0.4 GRAM, QD
     Dates: start: 202411
  5. FERROUS SULFATE [Concomitant]
     Active Substance: FERROUS SULFATE
  6. MS CONTIN [Concomitant]
     Active Substance: MORPHINE SULFATE
     Indication: Pain
     Dosage: 60 MILLIGRAM, BID
     Dates: start: 20231026
  7. RITALIN [Concomitant]
     Active Substance: METHYLPHENIDATE HYDROCHLORIDE
     Indication: Fatigue
     Dosage: 5 MILLIGRAM, BID
     Dates: start: 20241014
  8. RITALIN [Concomitant]
     Active Substance: METHYLPHENIDATE HYDROCHLORIDE
     Dosage: 5 MILLIGRAM, BID
     Dates: start: 202406
  9. ATORVASTATIN [Concomitant]
     Active Substance: ATORVASTATIN
     Indication: Blood cholesterol
     Dosage: 10 MILLIGRAM, QD
     Dates: start: 202303, end: 20230712
  10. GABAPENTIN [Concomitant]
     Active Substance: GABAPENTIN
     Indication: Neuropathy peripheral
     Dosage: 300 MILLIGRAM, TID
     Dates: start: 202401

REACTIONS (6)
  - Cardio-respiratory arrest [Fatal]
  - Colorectal cancer metastatic [Fatal]
  - Metastases to liver [Unknown]
  - Abdominal discomfort [Not Recovered/Not Resolved]
  - Diarrhoea [Not Recovered/Not Resolved]
  - Stoma site haemorrhage [Recovering/Resolving]
